FAERS Safety Report 20919317 (Version 1)
Quarter: 2022Q2

REPORT INFORMATION
  Report Type: Spontaneous
  Country: IT (occurrence: IT)
  Receive Date: 20220606
  Receipt Date: 20220606
  Transmission Date: 20220721
  Serious: No
  Sender: FDA-Public Use
  Company Number: IT-GLAXOSMITHKLINE-IT2022EME086857

PATIENT

DRUGS (5)
  1. SOTROVIMAB [Suspect]
     Active Substance: SOTROVIMAB
     Indication: Coronavirus infection
     Dosage: 500 MG, Z, SINGLE DOSE
     Route: 042
  2. SOTROVIMAB [Suspect]
     Active Substance: SOTROVIMAB
     Indication: Respiratory failure
  3. DEXAMETHASONE [Concomitant]
     Active Substance: DEXAMETHASONE
     Indication: Product used for unknown indication
     Dosage: UNK
     Route: 042
  4. OXYGEN [Concomitant]
     Active Substance: OXYGEN
     Indication: Coronavirus infection
     Dosage: UNK, LOW FLOW OXYGEN THERAPY WITH VENTURI MASK
  5. OXYGEN [Concomitant]
     Active Substance: OXYGEN
     Indication: Respiratory failure
     Dosage: UNK, HIGH OXYGEN FLOWS

REACTIONS (2)
  - COVID-19 [Unknown]
  - Off label use [Unknown]
